FAERS Safety Report 9406247 (Version 1)
Quarter: 2013Q3

REPORT INFORMATION
  Report Type: Spontaneous
  Country: US (occurrence: US)
  Receive Date: 20130717
  Receipt Date: 20130717
  Transmission Date: 20140515
  Serious: No
  Sender: FDA-Public Use
  Company Number: US-BAUSCH-BL-2013-001511

PATIENT
  Age: 38 Year
  Sex: Female

DRUGS (6)
  1. BESIVANCE (BESIFLOXACIN OPHTHALMIC SUSPENSION) 0.6% [Suspect]
     Indication: POSTOPERATIVE CARE
     Dosage: 1 DROP; FOUR TIMES A DAY; OPHTHALMIC
     Route: 047
     Dates: start: 20130107, end: 20130116
  2. BESIVANCE (BESIFLOXACIN OPHTHALMIC SUSPENSION) 0.6% [Suspect]
     Indication: OFF LABEL USE
  3. BROMDAY 0.09% [Concomitant]
     Indication: POSTOPERATIVE CARE
     Dosage: DROP; OPHTHALMIC
     Route: 047
  4. BROMDAY 0.09% [Concomitant]
     Indication: OFF LABEL USE
  5. PREDNISOLONE ACETATE [Concomitant]
     Indication: POSTOPERATIVE CARE
     Dosage: DROP; OPHTHALMIC
     Route: 047
  6. FLUOROMETHOLONE ACETATE [Concomitant]
     Indication: POSTOPERATIVE CARE
     Dosage: DROP; OPHTHALMIC
     Route: 047

REACTIONS (2)
  - Corneal opacity [Not Recovered/Not Resolved]
  - Endothelial dysfunction [Not Recovered/Not Resolved]
